FAERS Safety Report 13974934 (Version 3)
Quarter: 2017Q4

REPORT INFORMATION
  Report Type: Spontaneous
  Country: US (occurrence: US)
  Receive Date: 20170915
  Receipt Date: 20171016
  Transmission Date: 20180321
  Serious: Yes (Hospitalization, Other)
  Sender: FDA-Public Use
  Company Number: US-ALLERGAN-1752336US

PATIENT
  Age: 73 Year
  Sex: Female
  Weight: 74.38 kg

DRUGS (5)
  1. ASPIRIN. [Concomitant]
     Active Substance: ASPIRIN
     Dosage: 10 MG, QD
     Route: 048
  2. ASPIRIN. [Concomitant]
     Active Substance: ASPIRIN
     Indication: PRODUCT USED FOR UNKNOWN INDICATION
     Dosage: 10 MG, BID
     Route: 048
  3. BYSTOLIC [Suspect]
     Active Substance: NEBIVOLOL HYDROCHLORIDE
     Indication: HYPERTENSION
     Dosage: UNK
     Route: 048
     Dates: start: 2011
  4. CYCLOSPORINE. [Suspect]
     Active Substance: CYCLOSPORINE
     Indication: URTICARIA
     Dosage: UNK
     Route: 048
     Dates: start: 20160101, end: 20160630
  5. DAPSONE. [Suspect]
     Active Substance: DAPSONE
     Indication: RASH
     Dosage: UNK
     Route: 048
     Dates: start: 201606, end: 201607

REACTIONS (9)
  - Myasthenia gravis [Not Recovered/Not Resolved]
  - Throat tightness [Unknown]
  - Volume blood decreased [Recovered/Resolved]
  - Diplopia [Unknown]
  - Feeding disorder [Unknown]
  - Vision blurred [Unknown]
  - Hypotension [Unknown]
  - Haemoglobin decreased [Recovered/Resolved]
  - Fatigue [Unknown]

NARRATIVE: CASE EVENT DATE: 201607
